FAERS Safety Report 6491014-9 (Version None)
Quarter: 2009Q4

REPORT INFORMATION
  Report Type: 
  Country: None (occurrence: None)
  Receive Date: 20091211
  Receipt Date: 20091130
  Transmission Date: 20100525
  Serious: Yes (Hospitalization)
  Sender: FDA-Public Use
  Company Number: US-BRACCO-BDI-008765

PATIENT
  Age: 66 Year
  Sex: Female

DRUGS (6)
  1. ISOVUE-M [Suspect]
     Indication: PAIN MANAGEMENT
     Route: 065
     Dates: start: 20061019, end: 20061019
  2. ISOVUE-M [Suspect]
     Indication: SPINAL NERVE STIMULATOR IMPLANTATION
     Route: 065
     Dates: start: 20061019, end: 20061019
  3. LYRICA [Concomitant]
     Route: 065
  4. VERSED [Concomitant]
     Route: 065
  5. DILAUDID [Concomitant]
     Route: 065
  6. FENTANYL [Concomitant]
     Route: 065

REACTIONS (3)
  - INCORRECT ROUTE OF DRUG ADMINISTRATION [None]
  - MUSCULOSKELETAL PAIN [None]
  - TACHYCARDIA [None]
